FAERS Safety Report 5519306-8 (Version None)
Quarter: 2007Q4

REPORT INFORMATION
  Report Type: 
  Country: None (occurrence: None)
  Receive Date: 20071116
  Receipt Date: 20071106
  Transmission Date: 20080405
  Serious: Yes (Other)
  Sender: FDA-Public Use
  Company Number: JP-WYE-H01134207

PATIENT
  Age: 51 Year
  Sex: Female

DRUGS (1)
  1. ARTANE [Suspect]
     Dosage: ^1 % POW^
     Route: 048
     Dates: start: 20050201, end: 20060601

REACTIONS (1)
  - NEUROLEPTIC MALIGNANT SYNDROME [None]
